FAERS Safety Report 23713539 (Version 1)
Quarter: 2024Q2

REPORT INFORMATION
  Report Type: Spontaneous
  Country: US (occurrence: US)
  Receive Date: 20240405
  Receipt Date: 20240405
  Transmission Date: 20240715
  Serious: Yes (Other)
  Sender: FDA-Public Use
  Company Number: US-DRL-USA-LIT/USA/24/0005266

PATIENT
  Age: 61 Year

DRUGS (22)
  1. TACROLIMUS [Suspect]
     Active Substance: TACROLIMUS
     Indication: Graft versus host disease
  2. TACROLIMUS [Suspect]
     Active Substance: TACROLIMUS
     Indication: Myelosuppression
  3. TACROLIMUS [Suspect]
     Active Substance: TACROLIMUS
     Indication: Cytopenia
  4. CYCLOSPORINE [Suspect]
     Active Substance: CYCLOSPORINE
     Indication: Graft versus host disease
  5. CYCLOSPORINE [Suspect]
     Active Substance: CYCLOSPORINE
     Indication: Myelosuppression
  6. CYCLOSPORINE [Suspect]
     Active Substance: CYCLOSPORINE
     Indication: Cytopenia
  7. SIROLIMUS [Suspect]
     Active Substance: SIROLIMUS
     Indication: Graft versus host disease
  8. SIROLIMUS [Suspect]
     Active Substance: SIROLIMUS
     Indication: Myelosuppression
  9. SIROLIMUS [Suspect]
     Active Substance: SIROLIMUS
     Indication: Cytopenia
  10. MYCOPHENOLATE MOFETIL [Suspect]
     Active Substance: MYCOPHENOLATE MOFETIL
     Indication: Graft versus host disease
  11. MYCOPHENOLATE MOFETIL [Suspect]
     Active Substance: MYCOPHENOLATE MOFETIL
     Indication: Myelosuppression
  12. MYCOPHENOLATE MOFETIL [Suspect]
     Active Substance: MYCOPHENOLATE MOFETIL
     Indication: Cytopenia
  13. RUXOLITINIB [Suspect]
     Active Substance: RUXOLITINIB
     Indication: Graft versus host disease
  14. RUXOLITINIB [Suspect]
     Active Substance: RUXOLITINIB
     Indication: Myelosuppression
  15. RUXOLITINIB [Suspect]
     Active Substance: RUXOLITINIB
     Indication: Cytopenia
  16. BASILIXIMAB [Suspect]
     Active Substance: BASILIXIMAB
     Indication: Graft versus host disease
     Dosage: ON DAY 1, 4, 7, 14,21, 28, FOLLOWED BY ALTERNATE WEEK AND THEN MONTHLY DOSING FOR 2-9 MONTHS
  17. BASILIXIMAB [Suspect]
     Active Substance: BASILIXIMAB
     Indication: Myelosuppression
  18. BASILIXIMAB [Suspect]
     Active Substance: BASILIXIMAB
     Indication: Cytopenia
  19. BASILIXIMAB [Suspect]
     Active Substance: BASILIXIMAB
     Indication: Off label use
  20. PREDNISONE [Suspect]
     Active Substance: PREDNISONE
     Indication: Graft versus host disease
  21. PREDNISONE [Suspect]
     Active Substance: PREDNISONE
     Indication: Myelosuppression
  22. PREDNISONE [Suspect]
     Active Substance: PREDNISONE
     Indication: Cytopenia

REACTIONS (3)
  - Cytomegalovirus infection reactivation [Recovering/Resolving]
  - Epstein-Barr viraemia [Recovering/Resolving]
  - Drug ineffective [Unknown]
